FAERS Safety Report 9530741 (Version 1)
Quarter: 2013Q3

REPORT INFORMATION
  Report Type: Spontaneous
  Country: HR (occurrence: HR)
  Receive Date: 20130918
  Receipt Date: 20130918
  Transmission Date: 20140515
  Serious: Yes (Other)
  Sender: FDA-Public Use
  Company Number: HR-AMGEN-HRVSP2013065204

PATIENT
  Age: 42 Year
  Sex: Female
  Weight: 46 kg

DRUGS (4)
  1. ENBREL [Suspect]
     Indication: ANKYLOSING SPONDYLITIS
     Dosage: 50 MG, WEEKLY
     Route: 058
     Dates: start: 20100917, end: 20130902
  2. MEDROL                             /00049601/ [Concomitant]
     Indication: ANKYLOSING SPONDYLITIS
     Dosage: 4 MG, 1X/DAY
     Route: 048
     Dates: start: 20090403
  3. CONTROLOC                          /01263201/ [Concomitant]
     Indication: ANKYLOSING SPONDYLITIS
     Dosage: 20 MG, 1X/DAY
     Route: 048
     Dates: start: 20090403
  4. INDOMETACIN [Concomitant]
     Indication: ANKYLOSING SPONDYLITIS
     Dosage: 25 MG, 1X/DAY
     Route: 048
     Dates: start: 20090403

REACTIONS (2)
  - Abdominal mass [Unknown]
  - Abdominal pain [Unknown]
